FAERS Safety Report 9520809 (Version 1)
Quarter: 2013Q1

REPORT INFORMATION
  Report Type: Spontaneous
  Country: US (occurrence: None)
  Receive Date: 20130305
  Receipt Date: 20130305
  Transmission Date: 20140127
  Serious: No
  Sender: FDA-Public Use
  Company Number: 163-21880-10112767

PATIENT
  Age: 39 Year
  Sex: Male

DRUGS (1)
  1. REVLIMID (LENALIDOMIDE) (15 MILLIGRAM, CAPSULES) [Suspect]
     Indication: AMYLOIDOSIS
     Route: 048
     Dates: start: 200906

REACTIONS (2)
  - Cerebrovascular accident [None]
  - Memory impairment [None]
